FAERS Safety Report 8119140-9 (Version None)
Quarter: 2012Q1

REPORT INFORMATION
  Report Type: 
  Country: None (occurrence: None)
  Receive Date: 20120207
  Receipt Date: 20120207
  Transmission Date: 20120608
  Serious: Yes (Hospitalization)
  Sender: FDA-Public Use
  Company Number: None

PATIENT
  Age: 51 Year
  Sex: Male
  Weight: 97.6 kg

DRUGS (1)
  1. VALPROIC ACID [Suspect]

REACTIONS (3)
  - AMMONIA INCREASED [None]
  - MENTAL STATUS CHANGES [None]
  - ANTICONVULSANT DRUG LEVEL INCREASED [None]
